FAERS Safety Report 7875681-0 (Version None)
Quarter: 2011Q4

REPORT INFORMATION
  Report Type: 
  Country: None (occurrence: None)
  Receive Date: 20111031
  Receipt Date: 20111026
  Transmission Date: 20120403
  Serious: Yes (Hospitalization, Disabling)
  Sender: FDA-Public Use
  Company Number: US-B.I. PHARMACEUTICALS,INC./RIDGEFIELD-2011-BP-21096BP

PATIENT
  Sex: Male

DRUGS (10)
  1. CATAPRES-TTS-1 [Suspect]
     Dosage: 0.2 MG
     Route: 061
  2. CATAPRES-TTS-1 [Suspect]
     Dosage: 0.3 MG
     Route: 061
     Dates: end: 20110811
  3. MYCOPHENOLATE MOFETIL (CELLCEPT) [Concomitant]
     Indication: PROPHYLAXIS AGAINST TRANSPLANT REJECTION
  4. NORVASC [Concomitant]
     Indication: HYPERTENSION
     Dates: start: 19910101
  5. PREDNISONE [Concomitant]
     Indication: PROPHYLAXIS AGAINST TRANSPLANT REJECTION
  6. CATAPRES-TTS-1 [Suspect]
     Indication: HYPERTENSION
     Dosage: 0.1 MG
     Route: 061
     Dates: start: 19910101
  7. ASPIRIN [Concomitant]
  8. CLONIDINE [Concomitant]
     Indication: HYPERTENSION
     Dosage: 0.6 MG
  9. TENORMIN [Concomitant]
     Indication: HYPERTENSION
     Dates: start: 20090101
  10. NEORAL [Concomitant]
     Indication: PROPHYLAXIS AGAINST TRANSPLANT REJECTION

REACTIONS (3)
  - BLOOD PRESSURE ABNORMAL [None]
  - RENAL FAILURE [None]
  - BLOOD PRESSURE SYSTOLIC INCREASED [None]
